FAERS Safety Report 17083983 (Version 2)
Quarter: 2020Q1

REPORT INFORMATION
  Report Type: Spontaneous
  Country: BR (occurrence: BR)
  Receive Date: 20191127
  Receipt Date: 20200224
  Transmission Date: 20200409
  Serious: Yes (Other)
  Sender: FDA-Public Use
  Company Number: NVSC2019BR045890

PATIENT
  Age: 49 Year
  Sex: Female

DRUGS (5)
  1. KISQALI [Suspect]
     Active Substance: RIBOCICLIB
     Dosage: UNK (CYCLE 2)
     Route: 065
  2. FEMARA [Suspect]
     Active Substance: LETROZOLE
     Dosage: 2.5 MG EVERYDAY (CONTINUOS USE)
     Route: 048
     Dates: start: 201909, end: 202001
  3. KISQALI [Suspect]
     Active Substance: RIBOCICLIB
     Indication: BREAST CANCER
     Dosage: UNK (CYCLE 1)
     Route: 065
  4. KISQALI [Suspect]
     Active Substance: RIBOCICLIB
     Dosage: 600 MG EVERY 21 DAYS, 7 DAYS OF BREAK (28 DAYS CYCLE)
     Route: 048
     Dates: start: 201909, end: 202001
  5. FEMARA [Suspect]
     Active Substance: LETROZOLE
     Indication: BREAST CANCER
     Dosage: UNK
     Route: 065

REACTIONS (2)
  - Neutropenia [Recovered/Resolved]
  - Anaemia [Recovering/Resolving]

NARRATIVE: CASE EVENT DATE: 20191105
